FAERS Safety Report 5087552-6 (Version None)
Quarter: 2006Q3

REPORT INFORMATION
  Report Type: 
  Country: None (occurrence: None)
  Receive Date: 20060824
  Receipt Date: 20060821
  Transmission Date: 20061208
  Serious: Yes (Other)
  Sender: FDA-Public Use
  Company Number: GB-GLAXOSMITHKLINE-B0435383A

PATIENT
  Age: 41 Year
  Sex: Male

DRUGS (6)
  1. ROSIGLITAZONE [Suspect]
     Dosage: 8MG UNKNOWN
     Route: 048
     Dates: start: 20050307
  2. CIPROFIBRATE [Concomitant]
     Dosage: 100MG PER DAY
     Route: 048
  3. HUMALOG [Concomitant]
     Route: 058
  4. LANTUS [Concomitant]
     Route: 058
  5. ORLISTAT [Concomitant]
     Indication: OBESITY
     Dosage: 120MG UNKNOWN
     Route: 065
     Dates: start: 20060701
  6. RAMIPRIL [Concomitant]
     Dosage: 10MG UNKNOWN
     Route: 048

REACTIONS (3)
  - FATIGUE [None]
  - LETHARGY [None]
  - NORMOCHROMIC NORMOCYTIC ANAEMIA [None]
